FAERS Safety Report 8808682 (Version 1)
Quarter: 2012Q4

REPORT INFORMATION
  Report Type: Spontaneous
  Country: US (occurrence: None)
  Receive Date: 20120921
  Receipt Date: 20120921
  Transmission Date: 20130627
  Serious: No
  Sender: FDA-Public Use
  Company Number: None

PATIENT
  Sex: Female

DRUGS (1)
  1. CREST COMPLETE MULTI-BENEFIT PLUS SCOPE [Suspect]
     Indication: DENTAL CARE

REACTIONS (2)
  - Gingival bleeding [None]
  - Gingival blister [None]
